FAERS Safety Report 6116008-4 (Version None)
Quarter: 2009Q1

REPORT INFORMATION
  Report Type: 
  Country: None (occurrence: None)
  Receive Date: 20090314
  Receipt Date: 20081210
  Transmission Date: 20090719
  Serious: No
  Sender: FDA-Public Use
  Company Number: US-ABBOTT-08P-163-0492303-00

PATIENT
  Sex: Female
  Weight: 25.424 kg

DRUGS (4)
  1. HUMIRA [Suspect]
     Indication: JUVENILE ARTHRITIS
     Route: 058
     Dates: start: 20080101
  2. NAPROSYN [Concomitant]
     Indication: PAIN
  3. METHOTREXATE [Concomitant]
     Indication: JUVENILE ARTHRITIS
  4. LANSOPRAZOLE [Concomitant]
     Indication: GASTRIC DISORDER

REACTIONS (1)
  - INJECTION SITE PAIN [None]
